FAERS Safety Report 15942276 (Version 3)
Quarter: 2019Q2

REPORT INFORMATION
  Report Type: Spontaneous
  Country: JP (occurrence: JP)
  Receive Date: 20190209
  Receipt Date: 20190527
  Transmission Date: 20190711
  Serious: Yes (Other)
  Sender: FDA-Public Use
  Company Number: JP-AMGEN-JPNSP2018075579

PATIENT
  Age: 53 Year
  Sex: Male
  Weight: 98.6 kg

DRUGS (7)
  1. VECTIBIX [Suspect]
     Active Substance: PANITUMUMAB
     Dosage: UNK
     Route: 041
     Dates: start: 20180802
  2. VECTIBIX [Suspect]
     Active Substance: PANITUMUMAB
     Indication: COLON CANCER RECURRENT
     Dosage: UNK
     Route: 041
     Dates: start: 20180410
  3. 5-FU [FLUOROURACIL] [Suspect]
     Active Substance: FLUOROURACIL
     Dosage: UNK, Q2WK
     Route: 041
     Dates: start: 20180410
  4. CALCIUM LEVOFOLINATE [Suspect]
     Active Substance: LEVOLEUCOVORIN CALCIUM
     Indication: COLON CANCER RECURRENT
     Dosage: UNK, Q2WK
     Route: 041
     Dates: start: 20180410
  5. OXALIPLATIN. [Suspect]
     Active Substance: OXALIPLATIN
     Indication: COLON CANCER RECURRENT
     Dosage: UNK, Q2WK
     Route: 041
     Dates: start: 20180410
  6. 5-FU [FLUOROURACIL] [Suspect]
     Active Substance: FLUOROURACIL
     Indication: COLON CANCER RECURRENT
     Dosage: UNK, Q2WK
     Route: 040
     Dates: start: 20180410
  7. 5-FU [FLUOROURACIL] [Suspect]
     Active Substance: FLUOROURACIL
     Dosage: UNK, Q2WK
     Route: 041

REACTIONS (8)
  - Disease progression [Unknown]
  - Decreased appetite [Unknown]
  - Hypomagnesaemia [Recovering/Resolving]
  - Paronychia [Recovering/Resolving]
  - Colon cancer [Unknown]
  - Rash [Unknown]
  - Palmar-plantar erythrodysaesthesia syndrome [Recovering/Resolving]
  - Neuropathy peripheral [Unknown]

NARRATIVE: CASE EVENT DATE: 20180705
